FAERS Safety Report 10989799 (Version 1)
Quarter: 2015Q2

REPORT INFORMATION
  Report Type: Spontaneous
  Country: TR (occurrence: TR)
  Receive Date: 20150406
  Receipt Date: 20150406
  Transmission Date: 20150821
  Serious: Yes (Other)
  Sender: FDA-Public Use
  Company Number: TR-CIPLA LTD.-2015TR02592

PATIENT

DRUGS (7)
  1. CAPECITABINE. [Suspect]
     Active Substance: CAPECITABINE
     Indication: RECTAL CANCER STAGE II
     Dosage: 2,500 MG/M2 ON DAYS 1-14 OF 21
     Dates: end: 200406
  2. IRINOTECAN [Suspect]
     Active Substance: IRINOTECAN
     Indication: RECTAL CANCER STAGE II
     Dosage: 180 MG/M2, DAYS 1 AND 15 OF 28
  3. LEUCOVORIN [Suspect]
     Active Substance: LEUCOVORIN
     Indication: RECTAL CANCER STAGE II
     Dosage: 200 MG/M2
  4. RALTITREXED [Suspect]
     Active Substance: RALTITREXED
     Indication: RECTAL CANCER STAGE II
     Dosage: 3 MG/M2 ON DAY 1 OF 21
     Dates: end: 200406
  5. OXALIPLATIN. [Suspect]
     Active Substance: OXALIPLATIN
     Indication: RECTAL CANCER STAGE II
     Dosage: 130 MG/M2  ON DAY 1 OF 21
     Dates: end: 200406
  6. 5-FLUOROURASIL [Suspect]
     Active Substance: FLUOROURACIL
     Indication: RECTAL CANCER STAGE II
     Dosage: 400 MG/M2 IV BOLUS
     Route: 042
  7. 5-FLUOROURASIL [Suspect]
     Active Substance: FLUOROURACIL
     Dosage: 600 MG/M2 FOR 22HRS ON DAYS 1, 2 AND 15, 16 OF 28
     Route: 042

REACTIONS (3)
  - Drug intolerance [Unknown]
  - Metastases to liver [Unknown]
  - Chronic myeloid leukaemia [Unknown]

NARRATIVE: CASE EVENT DATE: 200401
